FAERS Safety Report 4808354-9 (Version None)
Quarter: 2005Q4

REPORT INFORMATION
  Report Type: 
  Country: None (occurrence: None)
  Receive Date: 20051021
  Receipt Date: 20051017
  Transmission Date: 20060501
  Serious: Yes (Other)
  Sender: FDA-Public Use
  Company Number: US_0507119684

PATIENT
  Age: 43 Year
  Sex: Male
  Weight: 91 kg

DRUGS (1)
  1. ZYPREXA [Suspect]
     Dosage: 5 MG/1 DAY
     Route: 048

REACTIONS (1)
  - DEEP VEIN THROMBOSIS [None]
